FAERS Safety Report 10417820 (Version 1)
Quarter: 2014Q3

REPORT INFORMATION
  Report Type: Spontaneous
  Country: US (occurrence: None)
  Receive Date: 20140828
  Receipt Date: 20140828
  Transmission Date: 20150326
  Serious: Yes (Other)
  Sender: FDA-Public Use
  Company Number: None

PATIENT
  Age: 41 Year
  Sex: Male

DRUGS (1)
  1. VALSARTAN. [Suspect]
     Active Substance: VALSARTAN
     Indication: HYPERTENSION
     Dates: start: 20140824

REACTIONS (4)
  - Product substitution issue [None]
  - Erythema [None]
  - Hypertension [None]
  - Adverse drug reaction [None]

NARRATIVE: CASE EVENT DATE: 20140824
